FAERS Safety Report 9114294 (Version 1)
Quarter: 2013Q1

REPORT INFORMATION
  Report Type: Spontaneous
  Country: US (occurrence: None)
  Receive Date: 20130220
  Receipt Date: 20130220
  Transmission Date: 20140127
  Serious: Yes (Other)
  Sender: FDA-Public Use
  Company Number: None

PATIENT
  Age: 92 Year
  Sex: Female
  Weight: 64.41 kg

DRUGS (1)
  1. LISINOPRIL [Suspect]
     Indication: HYPERTENSION
     Dosage: 1X DAILY  PO
     Route: 048
     Dates: start: 20121110, end: 20130213

REACTIONS (3)
  - Blood pressure increased [None]
  - Product substitution issue [None]
  - Product quality issue [None]
